FAERS Safety Report 7324872-6 (Version None)
Quarter: 2011Q1

REPORT INFORMATION
  Report Type: 
  Country: None (occurrence: None)
  Receive Date: 20110301
  Receipt Date: 20110223
  Transmission Date: 20110831
  Serious: Yes (Hospitalization)
  Sender: FDA-Public Use
  Company Number: US-GENZYME-MOZO-1000472

PATIENT
  Sex: Female
  Weight: 73.8 kg

DRUGS (13)
  1. BORTEZOMIB [Suspect]
     Dosage: 1.3 MG/M2, ONCE
     Route: 042
     Dates: start: 20110109, end: 20110109
  2. ADVAIR DISKUS 100/50 [Concomitant]
     Indication: PRODUCT USED FOR UNKNOWN INDICATION
     Dosage: 1 DF, BID
     Route: 055
  3. MOZOBIL [Suspect]
     Dosage: 320 MCG/KG, ONCE
     Route: 058
     Dates: start: 20110113, end: 20110113
  4. BORTEZOMIB [Suspect]
     Indication: MULTIPLE MYELOMA
     Dosage: 1.3 MG/M2, ONCE
     Route: 042
     Dates: start: 20110106, end: 20110106
  5. MOZOBIL [Suspect]
     Indication: MULTIPLE MYELOMA
     Dosage: 320 MCG/KG, ONCE
     Route: 058
     Dates: start: 20110109, end: 20110109
  6. NORVASC [Concomitant]
     Indication: PRODUCT USED FOR UNKNOWN INDICATION
     Dosage: 10 MG, QD
     Route: 048
  7. ALBUTEROL [Concomitant]
     Indication: PRODUCT USED FOR UNKNOWN INDICATION
     Dosage: 1 DF, Q4HR
     Route: 055
  8. MOZOBIL [Suspect]
     Dosage: 320 MCG/KG, ONCE
     Route: 058
     Dates: start: 20110116, end: 20110116
  9. BORTEZOMIB [Suspect]
     Dosage: 1.3 MG/M2, ONCE
     Route: 042
     Dates: start: 20110113, end: 20110113
  10. MOZOBIL [Suspect]
     Indication: HAEMATOPOIETIC STEM CELL MOBILISATION
     Dosage: 320 MCG/KG, QD
     Route: 058
     Dates: start: 20110104, end: 20110106
  11. MOZOBIL [Suspect]
     Dosage: 320 MCG/KG, ONCE
     Route: 058
     Dates: start: 20110206, end: 20110206
  12. BORTEZOMIB [Suspect]
     Dosage: 1.3 MG/M2, ONCE
     Route: 042
     Dates: start: 20110116, end: 20110116
  13. BORTEZOMIB [Suspect]
     Dosage: 1.3 MG/M2, ONCE
     Route: 042
     Dates: start: 20110206, end: 20110206

REACTIONS (2)
  - UPPER RESPIRATORY TRACT INFECTION [None]
  - INFLUENZA [None]
